FAERS Safety Report 12321415 (Version 1)
Quarter: 2016Q2

REPORT INFORMATION
  Report Type: Spontaneous
  Country: US (occurrence: None)
  Receive Date: 20160429
  Receipt Date: 20160429
  Transmission Date: 20160815
  Serious: Yes (Hospitalization)
  Sender: FDA-Public Use
  Company Number: None

PATIENT
  Age: 61 Year
  Sex: Female
  Weight: 58.97 kg

DRUGS (10)
  1. MAGNESIUM [Concomitant]
     Active Substance: MAGNESIUM
  2. TURMERIC [Concomitant]
     Active Substance: TURMERIC
  3. AMMOXICILLIN [Concomitant]
  4. ATIVAN [Concomitant]
     Active Substance: LORAZEPAM
  5. METRONIDAZOL [Concomitant]
     Active Substance: METRONIDAZOLE
  6. FISH OIL [Concomitant]
     Active Substance: FISH OIL
  7. B [Concomitant]
  8. LATUDA [Suspect]
     Active Substance: LURASIDONE HYDROCHLORIDE
     Indication: INSOMNIA
     Dosage: 7 CAPSULE(S) ONCE A DAY TAKEN BY MOUTH
     Route: 048
     Dates: start: 20160427, end: 20160427
  9. LATUDA [Suspect]
     Active Substance: LURASIDONE HYDROCHLORIDE
     Indication: POST-TRAUMATIC STRESS DISORDER
     Dosage: 7 CAPSULE(S) ONCE A DAY TAKEN BY MOUTH
     Route: 048
     Dates: start: 20160427, end: 20160427
  10. VITAMIN C [Concomitant]
     Active Substance: ASCORBIC ACID

REACTIONS (4)
  - Palpitations [None]
  - Tremor [None]
  - Hypertension [None]
  - Drug ineffective [None]

NARRATIVE: CASE EVENT DATE: 20160427
